FAERS Safety Report 18419053 (Version 2)
Quarter: 2020Q4

REPORT INFORMATION
  Report Type: Spontaneous
  Country: US (occurrence: US)
  Receive Date: 20201023
  Receipt Date: 20201112
  Transmission Date: 20210114
  Serious: No
  Sender: FDA-Public Use
  Company Number: US-TEVA-2020-US-1839759

PATIENT
  Age: 83 Year
  Sex: Female

DRUGS (1)
  1. TEVA^S KETOCONAZOLE 2 %. [Suspect]
     Active Substance: KETOCONAZOLE
     Route: 061

REACTIONS (2)
  - Skin exfoliation [Unknown]
  - Rash erythematous [Unknown]

NARRATIVE: CASE EVENT DATE: 2020
